APPROVED DRUG PRODUCT: PHENTERMINE HYDROCHLORIDE
Active Ingredient: PHENTERMINE HYDROCHLORIDE
Strength: 37.5MG
Dosage Form/Route: TABLET;ORAL
Application: A088910 | Product #001
Applicant: USL PHARMA INC
Approved: Jul 17, 1985 | RLD: No | RS: No | Type: DISCN